FAERS Safety Report 19880646 (Version 1)
Quarter: 2021Q3

REPORT INFORMATION
  Report Type: Spontaneous
  Country: IT (occurrence: IT)
  Receive Date: 20210924
  Receipt Date: 20210924
  Transmission Date: 20211014
  Serious: Yes (Death, Hospitalization, Other)
  Sender: FDA-Public Use
  Company Number: IT-MYLANLABS-2021M1064820

PATIENT
  Age: 59 Year
  Sex: Male

DRUGS (3)
  1. TOCILIZUMAB. [Suspect]
     Active Substance: TOCILIZUMAB
     Indication: COVID-19
     Dosage: 1 UNK, SINGLE
     Route: 065
  2. HYDROXYCHLOROQUINE [Interacting]
     Active Substance: HYDROXYCHLOROQUINE
     Indication: COVID-19
     Dosage: UNK, UNKNOWN
     Route: 065
  3. AZITHROMYCIN ANHYDROUS. [Suspect]
     Active Substance: AZITHROMYCIN ANHYDROUS
     Indication: COVID-19
     Dosage: UNK, UNKNOWN
     Route: 065

REACTIONS (6)
  - Pseudomonas infection [Fatal]
  - Product use in unapproved indication [Unknown]
  - Off label use [Unknown]
  - Hypoxia [Not Recovered/Not Resolved]
  - Drug interaction [Unknown]
  - Skin necrosis [Not Recovered/Not Resolved]
